FAERS Safety Report 8514146-X (Version None)
Quarter: 2012Q3

REPORT INFORMATION
  Report Type: 
  Country: None (occurrence: None)
  Receive Date: 20120717
  Receipt Date: 20120703
  Transmission Date: 20120928
  Serious: Yes (Death, Hospitalization, Disabling)
  Sender: FDA-Public Use
  Company Number: KR-MYLANLABS-2012S1013680

PATIENT
  Age: 56 Year
  Sex: Male
  Weight: 98 kg

DRUGS (6)
  1. LACTULOSE [Concomitant]
     Dosage: 30 ML/DAY
     Route: 065
  2. ENTECAVIR [Concomitant]
     Dosage: 0.5 MG/DAY
     Route: 065
  3. FLUVASTATIN SODIUM [Suspect]
     Dosage: 20 MG/DAY
     Route: 065
     Dates: start: 20081201
  4. ASPIRIN [Interacting]
     Dosage: 100 MG/DAY
     Route: 065
  5. BETAXOLOL [Concomitant]
     Dosage: 10 MG/DAY
     Route: 065
  6. CANDESARTAN CILEXETIL [Interacting]
     Dosage: 16 MG/DAY
     Route: 065

REACTIONS (5)
  - RHABDOMYOLYSIS [None]
  - HEPATIC FAILURE [None]
  - RENAL FAILURE [None]
  - DRUG INTERACTION [None]
  - ABASIA [None]
